FAERS Safety Report 12890597 (Version 1)
Quarter: 2016Q4

REPORT INFORMATION
  Report Type: Spontaneous
  Country: US (occurrence: US)
  Receive Date: 20161027
  Receipt Date: 20161027
  Transmission Date: 20170207
  Serious: No
  Sender: FDA-Public Use
  Company Number: US-JAZZ-2016-US-015704

PATIENT
  Sex: Female

DRUGS (43)
  1. FOLIC ACID. [Concomitant]
     Active Substance: FOLIC ACID
  2. IPRATROPIUM BROMIDE. [Concomitant]
     Active Substance: IPRATROPIUM BROMIDE
  3. XYREM [Suspect]
     Active Substance: SODIUM OXYBATE
     Dosage: 3.75 G, BID
     Route: 048
     Dates: start: 201603
  4. CYMBALTA [Concomitant]
     Active Substance: DULOXETINE HYDROCHLORIDE
  5. PRAVASTATIN SODIUM. [Concomitant]
     Active Substance: PRAVASTATIN SODIUM
  6. FLUTICASONE PROPIONATE. [Concomitant]
     Active Substance: FLUTICASONE PROPIONATE
  7. ACZONE [Concomitant]
     Active Substance: DAPSONE
  8. L-CARNITINE [Concomitant]
     Active Substance: LEVOCARNITINE
  9. PATADAY [Concomitant]
     Active Substance: OLOPATADINE HYDROCHLORIDE
  10. MULTIVITAMIN [Concomitant]
     Active Substance: VITAMINS
  11. CALCIUM [Concomitant]
     Active Substance: CALCIUM
  12. PREMARIN [Concomitant]
     Active Substance: ESTROGENS, CONJUGATED
  13. CORTISONE ACETATE. [Concomitant]
     Active Substance: CORTISONE ACETATE
  14. RESTASIS [Concomitant]
     Active Substance: CYCLOSPORINE
  15. ZANAFLEX [Concomitant]
     Active Substance: TIZANIDINE HYDROCHLORIDE
  16. PERCOCET [Concomitant]
     Active Substance: ACETAMINOPHEN\OXYCODONE HYDROCHLORIDE
  17. PROVIGIL [Concomitant]
     Active Substance: MODAFINIL
  18. HYDROCHLOROTHIAZIDE. [Concomitant]
     Active Substance: HYDROCHLOROTHIAZIDE
  19. VITAMIN B12 [Concomitant]
     Active Substance: CYANOCOBALAMIN
  20. TRULICITY [Concomitant]
     Active Substance: DULAGLUTIDE
  21. NASONEX [Concomitant]
     Active Substance: MOMETASONE FUROATE
  22. LYRICA [Concomitant]
     Active Substance: PREGABALIN
  23. GLUCOSAMINE CHONDROITIN [Concomitant]
     Active Substance: CHONDROITIN SULFATE (BOVINE)\GLUCOSAMINE HYDROCHLORIDE
  24. VESICARE [Concomitant]
     Active Substance: SOLIFENACIN SUCCINATE
  25. Q-10 CO-ENZYME [Concomitant]
  26. CEFTIN [Concomitant]
     Active Substance: CEFUROXIME AXETIL
  27. OXYCODONE HYDROCHLORIDE. [Concomitant]
     Active Substance: OXYCODONE HYDROCHLORIDE
  28. NORCO [Concomitant]
     Active Substance: ACETAMINOPHEN\HYDROCODONE BITARTRATE
  29. JUBLIA [Concomitant]
     Active Substance: EFINACONAZOLE
  30. LISINOPRIL. [Concomitant]
     Active Substance: LISINOPRIL
  31. GLIMEPIRIDE. [Concomitant]
     Active Substance: GLIMEPIRIDE
  32. BUDESONIDE. [Concomitant]
     Active Substance: BUDESONIDE
  33. DHA [Concomitant]
     Active Substance: DIETARY SUPPLEMENT
  34. FISH OIL [Concomitant]
     Active Substance: FISH OIL
  35. TOPROL XL [Concomitant]
     Active Substance: METOPROLOL SUCCINATE
  36. IRON [Concomitant]
     Active Substance: IRON
  37. REQUIP [Concomitant]
     Active Substance: ROPINIROLE HYDROCHLORIDE
  38. VITAMIN D [Concomitant]
     Active Substance: CHOLECALCIFEROL
  39. LUNESTA [Concomitant]
     Active Substance: ESZOPICLONE
  40. XYREM [Suspect]
     Active Substance: SODIUM OXYBATE
     Indication: NARCOLEPSY
     Dosage: 2.25 G, BID
     Route: 048
     Dates: start: 200807, end: 200807
  41. XYREM [Suspect]
     Active Substance: SODIUM OXYBATE
     Dosage: DOSE ADJUSTMENTS
     Route: 048
     Dates: start: 200808, end: 201603
  42. CREON [Concomitant]
     Active Substance: PANCRELIPASE AMYLASE\PANCRELIPASE LIPASE\PANCRELIPASE PROTEASE
  43. COENZYME Q10 [Concomitant]
     Active Substance: UBIDECARENONE

REACTIONS (3)
  - Neck pain [Unknown]
  - Cystitis [Unknown]
  - Hepatic enzyme abnormal [Recovered/Resolved]
